FAERS Safety Report 7586747-7 (Version None)
Quarter: 2011Q3

REPORT INFORMATION
  Report Type: 
  Country: None (occurrence: None)
  Receive Date: 20110701
  Receipt Date: 20110623
  Transmission Date: 20111222
  Serious: Yes (Hospitalization)
  Sender: FDA-Public Use
  Company Number: JP-MERCK-1105USA02012

PATIENT
  Age: 74 Year
  Sex: Female

DRUGS (10)
  1. LAMISIL [Suspect]
     Indication: ONYCHOMYCOSIS
     Dosage: DAILY DOSAGE UNKNOWN
     Route: 048
     Dates: end: 20110505
  2. AMLODIPINE BESYLATE [Concomitant]
     Indication: HYPERTENSION
     Route: 048
     Dates: end: 20110505
  3. LANSOPRAZOLE [Concomitant]
     Dosage: DIVIDED DOSE FREQUENCY UNKNOWN
     Route: 048
  4. ASPIRIN [Concomitant]
     Dosage: DAILY DOSAGE UNKNOWN
     Route: 048
  5. TROXSIN [Concomitant]
     Dosage: DAILY DOSAGE UNKNOWN
     Route: 048
  6. FOSAMAX [Suspect]
     Indication: OSTEOPOROSIS
     Route: 048
     Dates: end: 20110505
  7. VOGLIBOSE [Concomitant]
     Indication: DIABETES MELLITUS
     Dosage: DIVIDED DOSE FREQUENCY UNKNOWN
     Route: 048
  8. PREDNISOLONE [Concomitant]
     Dosage: DIVIDED DOSE FREQUENCY UNKNOWN
     Route: 048
     Dates: end: 20110505
  9. HYZAAR [Suspect]
     Indication: HYPERTENSION
     Route: 048
     Dates: end: 20110505
  10. ACTOS [Concomitant]
     Indication: DIABETES MELLITUS
     Dosage: DIVIDED DOSE FREQUENCY UNKNOWN
     Route: 048

REACTIONS (1)
  - RHABDOMYOLYSIS [None]
